FAERS Safety Report 12921839 (Version 1)
Quarter: 2016Q4

REPORT INFORMATION
  Report Type: Spontaneous
  Country: US (occurrence: US)
  Receive Date: 20161108
  Receipt Date: 20161108
  Transmission Date: 20170207
  Serious: Yes (Other)
  Sender: FDA-Public Use
  Company Number: US-PFIZER INC-2016515040

PATIENT
  Age: 83 Year
  Sex: Female

DRUGS (1)
  1. PREMARIN [Suspect]
     Active Substance: ESTROGENS, CONJUGATED

REACTIONS (5)
  - Condition aggravated [Unknown]
  - Localised infection [Unknown]
  - Gastrooesophageal reflux disease [Unknown]
  - Osteomyelitis [Unknown]
  - Back pain [Unknown]
